FAERS Safety Report 5769674-7 (Version None)
Quarter: 2008Q2

REPORT INFORMATION
  Report Type: 
  Country: None (occurrence: None)
  Receive Date: 20080612
  Receipt Date: 20080404
  Transmission Date: 20081010
  Serious: Yes (Other)
  Sender: FDA-Public Use
  Company Number: US-ABBOTT-08P-163-0445783-00

PATIENT
  Sex: Female
  Weight: 81.72 kg

DRUGS (13)
  1. HUMIRA [Suspect]
     Indication: PSORIATIC ARTHROPATHY
     Route: 058
     Dates: start: 20050601, end: 20070801
  2. HUMIRA [Suspect]
     Route: 058
     Dates: start: 20071201
  3. HUMIRA [Suspect]
     Dosage: PEN
     Route: 058
     Dates: start: 20070801, end: 20071201
  4. HUMIRA [Suspect]
     Dosage: SYRINGE
     Route: 058
     Dates: start: 20071201
  5. HUMIRA [Suspect]
     Indication: PSORIATIC ARTHROPATHY
     Dates: start: 20070801, end: 20071201
  6. DULOXETINE HYDROCHLORIDE [Concomitant]
     Indication: DEPRESSION
     Route: 048
  7. CYCLOBENZAPRINE HCL [Concomitant]
     Indication: ARTHRALGIA
     Route: 048
  8. LANSOPRAZOLE [Concomitant]
     Indication: GASTROOESOPHAGEAL REFLUX DISEASE
     Route: 048
  9. METHOTREXATE [Concomitant]
     Indication: ARTHRITIS
     Route: 048
  10. FOLIC ACID [Concomitant]
     Indication: VITAMIN SUPPLEMENTATION
     Route: 048
  11. IMIPREM [Concomitant]
     Indication: ARTHRITIS
     Route: 048
  12. ORACEA [Concomitant]
     Indication: ROSACEA
     Route: 048
  13. NAPROXEN [Concomitant]
     Indication: ARTHRALGIA
     Route: 048

REACTIONS (3)
  - INJECTION SITE PAIN [None]
  - MALIGNANT MELANOMA [None]
  - PAIN [None]
